FAERS Safety Report 15890304 (Version 4)
Quarter: 2019Q2

REPORT INFORMATION
  Report Type: Report from Study
  Country: None (occurrence: US)
  Receive Date: 20190130
  Receipt Date: 20190628
  Transmission Date: 20190711
  Serious: Yes (Hospitalization, Other)
  Sender: FDA-Public Use
  Company Number: US-ABBVIE-19S-163-2639578-00

PATIENT
  Age: 55 Year
  Sex: Male
  Weight: 123.03 kg

DRUGS (4)
  1. ATORVASTATIN [Concomitant]
     Active Substance: ATORVASTATIN
     Indication: BLOOD CHOLESTEROL INCREASED
  2. ANDROGEL [Suspect]
     Active Substance: TESTOSTERONE
     Indication: ANDROGEN DEFICIENCY
     Dosage: ANDROGEL PUMP
     Route: 061
     Dates: start: 201406
  3. LISINOPRIL HCTZ [Concomitant]
     Active Substance: HYDROCHLOROTHIAZIDE\LISINOPRIL
     Indication: HYPERTENSION
  4. ANDROGEL [Suspect]
     Active Substance: TESTOSTERONE
     Indication: BLOOD TESTOSTERONE DECREASED
     Route: 061
     Dates: start: 2017

REACTIONS (11)
  - Weight bearing difficulty [Recovered/Resolved with Sequelae]
  - Radiculopathy [Recovered/Resolved]
  - Pneumonia [Recovered/Resolved]
  - Post procedural complication [Recovered/Resolved]
  - Hypoaesthesia [Recovered/Resolved with Sequelae]
  - Pain [Recovered/Resolved with Sequelae]
  - Myelopathy [Unknown]
  - Spinal cord compression [Unknown]
  - Hemiplegia [Recovered/Resolved]
  - Muscular weakness [Recovered/Resolved with Sequelae]
  - Alopecia [Not Recovered/Not Resolved]

NARRATIVE: CASE EVENT DATE: 201602
